FAERS Safety Report 8295171-3 (Version None)
Quarter: 2012Q2

REPORT INFORMATION
  Report Type: 
  Country: None (occurrence: None)
  Receive Date: 20120418
  Receipt Date: 20120412
  Transmission Date: 20120825
  Serious: No
  Sender: FDA-Public Use
  Company Number: US-B.I. PHARMACEUTICALS,INC./RIDGEFIELD-2012-BP-06949BP

PATIENT
  Sex: Male

DRUGS (19)
  1. APRESOLINE [Concomitant]
     Indication: HYPERTENSION
     Dosage: 150 MG
     Route: 048
     Dates: start: 20120201
  2. DOXAZOSIN MESYLATE [Concomitant]
     Indication: CARDIAC DISORDER
     Dosage: 8 MG
     Route: 048
     Dates: start: 20020101
  3. GEMFIBROZIL [Concomitant]
     Indication: BLOOD CHOLESTEROL INCREASED
     Dosage: 600 MG
     Route: 048
     Dates: start: 19950101
  4. SERTRALINE HYDROCHLORIDE [Concomitant]
     Indication: DEPRESSION
     Dosage: 50 MG
     Route: 048
     Dates: start: 20020101
  5. CARAFATE [Concomitant]
     Dosage: 4 MG
     Route: 048
     Dates: start: 20020101
  6. LISINOPRIL [Concomitant]
     Indication: ATRIAL FIBRILLATION
     Dosage: 40 MG
     Route: 048
     Dates: start: 20020101
  7. ALLOPURINOL [Concomitant]
     Indication: GOUT
     Dosage: 100 MG
     Route: 048
     Dates: start: 20020101
  8. OMEPRAZOLE [Concomitant]
     Indication: GASTROOESOPHAGEAL REFLUX DISEASE
     Route: 048
     Dates: start: 20020101
  9. COMBIVENT [Suspect]
     Indication: PNEUMONIA
     Dosage: 8 PUF
     Route: 055
     Dates: start: 20120323
  10. COUMADIN [Concomitant]
     Indication: ATRIAL FIBRILLATION
     Dosage: 5 MG
     Route: 048
     Dates: start: 20120201
  11. SIMVASTATIN [Concomitant]
     Indication: BLOOD CHOLESTEROL INCREASED
     Dosage: 80 MG
     Route: 048
     Dates: start: 19950101
  12. ASPIRIN [Concomitant]
     Dosage: 81 MG
     Route: 048
     Dates: start: 20020101
  13. CALCIUM ACETATE [Concomitant]
     Indication: DRUG THERAPY
     Dosage: 2001 MG
     Route: 048
     Dates: start: 20020101
  14. FUROSEMIDE [Concomitant]
     Indication: FLUID RETENTION
     Dosage: 40 MG
     Route: 048
     Dates: start: 20020101
  15. COUMADIN [Concomitant]
     Dosage: 2.5 MG
     Route: 048
     Dates: start: 20120201
  16. LABETALOL HCL [Concomitant]
     Indication: CARDIAC DISORDER
     Dosage: 600 MG
     Route: 048
     Dates: start: 19950101
  17. AMLODIPINE [Concomitant]
     Indication: HYPERTENSION
     Route: 048
     Dates: start: 20020101
  18. MAGNESIUM OXIDE [Concomitant]
     Indication: SUPPLEMENTATION THERAPY
     Dosage: 1200 MG
     Route: 048
     Dates: start: 20020101
  19. PLAVIX [Concomitant]
     Indication: CARDIAC DISORDER
     Dosage: 75 MG
     Route: 048
     Dates: start: 20020101

REACTIONS (2)
  - PULMONARY OEDEMA [None]
  - DYSPNOEA EXERTIONAL [None]
